FAERS Safety Report 7764834-8 (Version None)
Quarter: 2011Q3

REPORT INFORMATION
  Report Type: 
  Country: None (occurrence: None)
  Receive Date: 20110921
  Receipt Date: 20110919
  Transmission Date: 20111222
  Serious: Yes (Other)
  Sender: FDA-Public Use
  Company Number: US-PFIZER INC-2011144820

PATIENT
  Sex: Female
  Weight: 66.7 kg

DRUGS (13)
  1. XANAX [Suspect]
  2. KLONOPIN [Suspect]
     Dosage: 0.25 MG, 2X/DAY
  3. EFFEXOR [Suspect]
  4. AMLODIPINE [Concomitant]
     Indication: HYPERTENSION
     Dosage: 10 MG, UNK
  5. VITAMIN D [Concomitant]
     Dosage: 1000 MG, UNK
  6. MULTI-VITAMINS [Concomitant]
     Dosage: UNK
  7. POTASSIUM [Concomitant]
     Dosage: 10 MG, UNK
  8. HYDROCHLOROTHIAZIDE [Concomitant]
     Indication: HYPERTENSION
     Dosage: 25 MG, UNK
  9. PRILOSEC [Concomitant]
     Indication: GASTRIC DISORDER
     Dosage: 20 MG, UNK
  10. GEODON [Suspect]
     Indication: ANXIETY
     Dosage: 20 MG, 1X/DAY
     Route: 048
     Dates: start: 20100601
  11. GEODON [Suspect]
     Indication: DEPRESSION
     Dosage: 20 MG, 2X/DAY
     Route: 048
  12. CRESTOR [Concomitant]
     Indication: BLOOD CHOLESTEROL INCREASED
     Dosage: UNK
  13. CALCIUM [Concomitant]
     Dosage: 500 MG, UNK

REACTIONS (13)
  - FEELING ABNORMAL [None]
  - FEAR [None]
  - PERIPHERAL COLDNESS [None]
  - SEDATION [None]
  - SOMNOLENCE [None]
  - DRY MOUTH [None]
  - TREMOR [None]
  - FEELING HOT [None]
  - NAUSEA [None]
  - DRUG DEPENDENCE [None]
  - FEELING COLD [None]
  - NERVOUSNESS [None]
  - VOMITING [None]
